FAERS Safety Report 7239385-X (Version None)
Quarter: 2011Q1

REPORT INFORMATION
  Report Type: 
  Country: None (occurrence: None)
  Receive Date: 20110121
  Receipt Date: 20110111
  Transmission Date: 20110831
  Serious: Yes (Hospitalization)
  Sender: FDA-Public Use
  Company Number: US-PERRIGO-11US000306

PATIENT
  Age: 32 Year
  Sex: Female

DRUGS (2)
  1. IBUPROFEN [Suspect]
     Indication: MUSCULOSKELETAL PAIN
  2. IBUPROFEN [Suspect]
     Indication: BACK PAIN
     Dosage: 800 MG, TID
     Route: 048

REACTIONS (6)
  - BACK PAIN [None]
  - HYPERTENSION [None]
  - PLATELET DISORDER [None]
  - EXTRADURAL HAEMATOMA [None]
  - SENSORY LOSS [None]
  - ASTHENIA [None]
